FAERS Safety Report 9216024 (Version 1)
Quarter: 2013Q2

REPORT INFORMATION
  Report Type: Spontaneous
  Country: GB (occurrence: None)
  Receive Date: 20130404
  Receipt Date: 20130404
  Transmission Date: 20140414
  Serious: Yes (Other)
  Sender: FDA-Public Use
  Company Number: GER/UKI/13/0028857

PATIENT
  Age: 86 Year
  Sex: Male
  Weight: 83 kg

DRUGS (2)
  1. DONEPEZIL (DONEPEZIL) [Suspect]
     Indication: DEMENTIA
     Route: 048
     Dates: start: 20120911
  2. VITAMIN B12 (CYANOCOBALAMIN) [Concomitant]

REACTIONS (4)
  - Rash [None]
  - Scratch [None]
  - Haemorrhage [None]
  - Activities of daily living impaired [None]
